FAERS Safety Report 9913889 (Version 1)
Quarter: 2014Q1

REPORT INFORMATION
  Report Type: Spontaneous
  Country: US (occurrence: None)
  Receive Date: 20140219
  Receipt Date: 20140219
  Transmission Date: 20141002
  Serious: Yes (Other)
  Sender: FDA-Public Use
  Company Number: None

PATIENT
  Age: 50 Year
  Sex: Female

DRUGS (1)
  1. LEVAQUIN [Suspect]
     Dosage: TAKEN BY MOUTH
     Dates: start: 20130902, end: 20130906

REACTIONS (3)
  - Pain in extremity [None]
  - Pain in extremity [None]
  - Walking aid user [None]
